FAERS Safety Report 12811694 (Version 1)
Quarter: 2016Q4

REPORT INFORMATION
  Report Type: Spontaneous
  Country: US (occurrence: US)
  Receive Date: 20161005
  Receipt Date: 20161005
  Transmission Date: 20170207
  Serious: No
  Sender: FDA-Public Use
  Company Number: US-AMGEN-USASP2016117448

PATIENT
  Age: 60 Year

DRUGS (1)
  1. PROLIA [Suspect]
     Active Substance: DENOSUMAB
     Indication: OSTEOPOROSIS
     Dosage: UNK, UNK
     Route: 065
     Dates: start: 20131230

REACTIONS (5)
  - Tension headache [Unknown]
  - Headache [Unknown]
  - Diarrhoea [Unknown]
  - Facial pain [Unknown]
  - Vomiting [Unknown]

NARRATIVE: CASE EVENT DATE: 201312
